FAERS Safety Report 21989389 (Version 3)
Quarter: 2023Q2

REPORT INFORMATION
  Report Type: Spontaneous
  Country: US (occurrence: US)
  Receive Date: 20230214
  Receipt Date: 20230502
  Transmission Date: 20230722
  Serious: No
  Sender: FDA-Public Use
  Company Number: US-BEH-2023154997

PATIENT
  Age: 10 Year
  Sex: Male

DRUGS (18)
  1. HIZENTRA [Suspect]
     Active Substance: HUMAN IMMUNOGLOBULIN G
     Indication: Cystic fibrosis
     Dosage: 4 GRAM, QW
     Route: 058
  2. BUDESONIDE [Concomitant]
     Active Substance: BUDESONIDE
  3. CALCIPOTRIENE [Concomitant]
     Active Substance: CALCIPOTRIENE
  4. CETIRIZINE [Concomitant]
     Active Substance: CETIRIZINE HYDROCHLORIDE
  5. CLOBETASOL [Concomitant]
     Active Substance: CLOBETASOL
  6. CREON [Concomitant]
     Active Substance: PANCRELIPASE AMYLASE\PANCRELIPASE LIPASE\PANCRELIPASE PROTEASE
  7. ERYTHROMYCIN [Concomitant]
     Active Substance: ERYTHROMYCIN
  8. FLUTICASONE [Concomitant]
     Active Substance: FLUTICASONE
  9. LIDO/PRILOCAINE [Concomitant]
  10. LORATADINE [Concomitant]
     Active Substance: LORATADINE
  11. OMEPRAZOLE [Concomitant]
     Active Substance: OMEPRAZOLE
  12. POLYETHYLENE GLYCOL 3350 [Concomitant]
     Active Substance: POLYETHYLENE GLYCOL 3350
  13. POLYETHYLENE GLYCOL 3350 [Concomitant]
     Active Substance: POLYETHYLENE GLYCOL 3350
  14. PULMOZYME [Concomitant]
     Active Substance: DORNASE ALFA
  15. RELISTOR [Concomitant]
     Active Substance: METHYLNALTREXONE BROMIDE
  16. TRIKAFTA [Concomitant]
     Active Substance: ELEXACAFTOR\IVACAFTOR\TEZACAFTOR
  17. VITAMIN D3 [Concomitant]
     Active Substance: CHOLECALCIFEROL
  18. XIFAXAN [Concomitant]
     Active Substance: RIFAXIMIN

REACTIONS (10)
  - COVID-19 [Recovered/Resolved]
  - Insurance issue [Recovered/Resolved]
  - Influenza [Recovered/Resolved]
  - Insurance issue [Recovered/Resolved]
  - Pharyngitis streptococcal [Unknown]
  - Insurance issue [Unknown]
  - Influenza [Unknown]
  - Insurance issue [Unknown]
  - No adverse event [Unknown]
  - Off label use [Unknown]

NARRATIVE: CASE EVENT DATE: 20221101
